FAERS Safety Report 12267237 (Version 1)
Quarter: 2016Q2

REPORT INFORMATION
  Report Type: Spontaneous
  Country: IN (occurrence: IN)
  Receive Date: 20160414
  Receipt Date: 20160414
  Transmission Date: 20160815
  Serious: Yes (Hospitalization)
  Sender: FDA-Public Use
  Company Number: PHHY2016IN046057

PATIENT
  Age: 35 Year
  Sex: Male

DRUGS (1)
  1. SCAPHO [Suspect]
     Active Substance: SECUKINUMAB
     Indication: PSORIASIS
     Dosage: 300 MG, QW, EVERY WEEK UNTILL FIRST MONTH FOLLOWED BY ONCE IN A MONTH
     Route: 058

REACTIONS (3)
  - Pyrexia [Unknown]
  - Cough [Unknown]
  - Pneumonia [Unknown]

NARRATIVE: CASE EVENT DATE: 20160401
